FAERS Safety Report 6530312 (Version 21)
Quarter: 2021Q2

REPORT INFORMATION
  Report Type: Spontaneous
  Country: US (occurrence: US)
  Receive Date: 20080118
  Receipt Date: 20210416
  Transmission Date: 20210717
  Serious: Yes (Hospitalization, Other)
  Sender: FDA-Public Use
  Company Number: US-ASTRAZENECA-2008UW00867

PATIENT
  Age: 20905 Day
  Sex: Male
  Weight: 68.9 kg

DRUGS (202)
  1. NEXIUM [Suspect]
     Active Substance: ESOMEPRAZOLE MAGNESIUM
     Indication: GASTROOESOPHAGEAL REFLUX DISEASE
     Route: 048
     Dates: start: 1999
  2. NEXIUM [Suspect]
     Active Substance: ESOMEPRAZOLE MAGNESIUM
     Indication: DYSPHAGIA
     Route: 048
     Dates: start: 1999
  3. NEXIUM [Suspect]
     Active Substance: ESOMEPRAZOLE MAGNESIUM
     Indication: VOMITING
     Route: 048
     Dates: start: 1999
  4. NEXIUM [Suspect]
     Active Substance: ESOMEPRAZOLE MAGNESIUM
     Indication: GASTRIC PH DECREASED
     Route: 048
     Dates: start: 20041129
  5. NEXIUM [Suspect]
     Active Substance: ESOMEPRAZOLE MAGNESIUM
     Indication: SCLERODERMA
     Route: 048
     Dates: start: 20041129
  6. NEXIUM [Suspect]
     Active Substance: ESOMEPRAZOLE MAGNESIUM
     Indication: SCLERODERMA
     Route: 048
     Dates: start: 200411, end: 2017
  7. NEXIUM [Suspect]
     Active Substance: ESOMEPRAZOLE MAGNESIUM
     Indication: THROAT IRRITATION
     Route: 048
     Dates: start: 200411, end: 2017
  8. NEXIUM [Suspect]
     Active Substance: ESOMEPRAZOLE MAGNESIUM
     Indication: LARYNGEAL STENOSIS
     Route: 048
     Dates: start: 200411, end: 2017
  9. NEXIUM [Suspect]
     Active Substance: ESOMEPRAZOLE MAGNESIUM
     Indication: GASTRIC ULCER
     Route: 048
     Dates: start: 200604, end: 201702
  10. NEXIUM [Suspect]
     Active Substance: ESOMEPRAZOLE MAGNESIUM
     Indication: HIATUS HERNIA
     Route: 048
     Dates: start: 200604, end: 201702
  11. NEXIUM [Suspect]
     Active Substance: ESOMEPRAZOLE MAGNESIUM
     Indication: GASTROOESOPHAGEAL REFLUX DISEASE
     Route: 048
  12. NEXIUM [Suspect]
     Active Substance: ESOMEPRAZOLE MAGNESIUM
     Indication: DYSPHAGIA
     Dosage: GENERIC NEXIUM?DAILY
     Route: 065
  13. NEXIUM [Suspect]
     Active Substance: ESOMEPRAZOLE MAGNESIUM
     Indication: SCLERODERMA
     Route: 048
  14. NEXIUM [Suspect]
     Active Substance: ESOMEPRAZOLE MAGNESIUM
     Indication: HYPERCHLORHYDRIA
     Route: 048
  15. PRILOSEC [Suspect]
     Active Substance: OMEPRAZOLE MAGNESIUM
     Indication: GASTROOESOPHAGEAL REFLUX DISEASE
     Dosage: 40 MG DAILY, DISCONTINUED AFTER TAKING FOR 1 TO 2 MONTHS
     Route: 048
     Dates: start: 1997
  16. PRILOSEC [Suspect]
     Active Substance: OMEPRAZOLE MAGNESIUM
     Indication: GASTROOESOPHAGEAL REFLUX DISEASE
     Route: 048
  17. PRILOSEC [Suspect]
     Active Substance: OMEPRAZOLE MAGNESIUM
     Indication: VOMITING
     Route: 048
  18. METOPROLOL SUCCINATE. [Suspect]
     Active Substance: METOPROLOL SUCCINATE
     Indication: HYPERTENSION
     Route: 048
     Dates: start: 2015
  19. PHENOBARB [Suspect]
     Active Substance: PHENOBARBITAL SODIUM
     Indication: SEIZURE
     Route: 065
     Dates: start: 1960
  20. ASPIRIN. [Concomitant]
     Active Substance: ASPIRIN
     Indication: ANTICOAGULANT THERAPY
     Dates: start: 2016
  21. AMLODIPINE [Concomitant]
     Active Substance: AMLODIPINE BESYLATE
     Indication: MORPHOEA
     Dosage: DAILY
  22. IMDUR [Concomitant]
     Active Substance: ISOSORBIDE MONONITRATE
     Indication: MYOCARDIAL INFARCTION
     Dosage: 120MG IN AM AND 20 MG AT NIGHT,
  23. NITROGLYCERIN. [Concomitant]
     Active Substance: NITROGLYCERIN
     Indication: CHEST PAIN
     Dosage: 0.4 MG UP TO 3 AS NEEDED
     Route: 060
  24. CRESTOR [Concomitant]
     Active Substance: ROSUVASTATIN CALCIUM
  25. DOXAZOSIN [Concomitant]
     Active Substance: DOXAZOSIN MESYLATE
  26. NEXIUM [Suspect]
     Active Substance: ESOMEPRAZOLE MAGNESIUM
     Indication: THROAT IRRITATION
     Route: 048
     Dates: start: 1999
  27. NEXIUM [Suspect]
     Active Substance: ESOMEPRAZOLE MAGNESIUM
     Indication: LARYNGEAL STENOSIS
     Route: 048
     Dates: start: 1999
  28. NEXIUM [Suspect]
     Active Substance: ESOMEPRAZOLE MAGNESIUM
     Indication: SCLERODERMA
     Dosage: GENERIC; 40 MG DAILY
     Route: 065
  29. NEXIUM [Suspect]
     Active Substance: ESOMEPRAZOLE MAGNESIUM
     Indication: DUODENAL ULCER
     Dosage: GENERIC; 40 MG DAILY
     Route: 065
  30. NEXIUM [Suspect]
     Active Substance: ESOMEPRAZOLE MAGNESIUM
     Indication: HELICOBACTER INFECTION
     Dosage: GENERIC; 40 MG DAILY
     Route: 065
  31. NEXIUM [Suspect]
     Active Substance: ESOMEPRAZOLE MAGNESIUM
     Indication: HIATUS HERNIA
     Route: 048
     Dates: start: 20041129
  32. NEXIUM [Suspect]
     Active Substance: ESOMEPRAZOLE MAGNESIUM
     Indication: THROAT IRRITATION
     Route: 048
     Dates: start: 20041129
  33. NEXIUM [Suspect]
     Active Substance: ESOMEPRAZOLE MAGNESIUM
     Indication: HELICOBACTER INFECTION
     Route: 048
     Dates: start: 200411, end: 2017
  34. NEXIUM [Suspect]
     Active Substance: ESOMEPRAZOLE MAGNESIUM
     Indication: THROAT IRRITATION
     Route: 048
     Dates: start: 200604, end: 201702
  35. NEXIUM [Suspect]
     Active Substance: ESOMEPRAZOLE MAGNESIUM
     Indication: HELICOBACTER INFECTION
     Route: 048
     Dates: start: 200604, end: 201702
  36. NEXIUM [Suspect]
     Active Substance: ESOMEPRAZOLE MAGNESIUM
     Indication: GASTROOESOPHAGEAL REFLUX DISEASE
     Route: 048
  37. NEXIUM [Suspect]
     Active Substance: ESOMEPRAZOLE MAGNESIUM
     Indication: HYPERCHLORHYDRIA
     Route: 048
  38. NEXIUM [Suspect]
     Active Substance: ESOMEPRAZOLE MAGNESIUM
     Indication: GASTRIC PH DECREASED
     Route: 048
  39. NEXIUM [Suspect]
     Active Substance: ESOMEPRAZOLE MAGNESIUM
     Indication: HIATUS HERNIA
     Route: 048
  40. NEXIUM [Suspect]
     Active Substance: ESOMEPRAZOLE MAGNESIUM
     Indication: THROAT IRRITATION
     Route: 048
  41. NEXIUM 24HR [Suspect]
     Active Substance: ESOMEPRAZOLE MAGNESIUM
     Indication: SCLERODERMA
     Route: 048
     Dates: start: 2014
  42. NEXIUM 24HR [Suspect]
     Active Substance: ESOMEPRAZOLE MAGNESIUM
     Indication: GASTROOESOPHAGEAL REFLUX DISEASE
     Route: 048
  43. PRILOSEC [Suspect]
     Active Substance: OMEPRAZOLE MAGNESIUM
     Indication: DYSPHAGIA
     Dosage: 40 MG DAILY, DISCONTINUED AFTER TAKING FOR 1 TO 2 MONTHS
     Route: 048
     Dates: start: 1997
  44. PRILOSEC [Suspect]
     Active Substance: OMEPRAZOLE MAGNESIUM
     Indication: VOMITING
     Dosage: 40 MG DAILY, DISCONTINUED AFTER TAKING FOR 1 TO 2 MONTHS
     Route: 048
     Dates: start: 1997
  45. PRILOSEC [Suspect]
     Active Substance: OMEPRAZOLE MAGNESIUM
     Indication: VOMITING
     Dosage: GENERIC
     Route: 065
     Dates: start: 201101
  46. LISINOPRIL. [Suspect]
     Active Substance: LISINOPRIL
     Indication: BLOOD PRESSURE MEASUREMENT
     Route: 048
     Dates: start: 2012
  47. LISINOPRIL. [Suspect]
     Active Substance: LISINOPRIL
     Indication: RENAL DISORDER
     Route: 048
     Dates: start: 2016
  48. LISINOPRIL. [Suspect]
     Active Substance: LISINOPRIL
     Indication: BLOOD PRESSURE MEASUREMENT
     Route: 048
  49. METOPROLOL SUCCINATE. [Suspect]
     Active Substance: METOPROLOL SUCCINATE
     Indication: HYPERTENSION
     Route: 048
  50. METOPROLOL TARTRATE. [Suspect]
     Active Substance: METOPROLOL TARTRATE
     Route: 048
     Dates: start: 2016
  51. PHENOBARB [Suspect]
     Active Substance: PHENOBARBITAL SODIUM
     Indication: AURA
     Dosage: 110.0MG UNKNOWN
     Route: 065
     Dates: start: 1960
  52. PHENOBARB [Suspect]
     Active Substance: PHENOBARBITAL SODIUM
     Indication: SEIZURE
     Dosage: 32.4MG UNKNOWN
     Route: 065
     Dates: start: 1960
  53. ZINC. [Concomitant]
     Active Substance: ZINC
  54. TAMSULOSIN [Concomitant]
     Active Substance: TAMSULOSIN
     Indication: PROSTATIC DISORDER
     Dates: start: 2010
  55. IMDUR [Concomitant]
     Active Substance: ISOSORBIDE MONONITRATE
     Indication: MYOCARDIAL INFARCTION
     Dates: start: 201504
  56. NEXIUM [Suspect]
     Active Substance: ESOMEPRAZOLE MAGNESIUM
     Indication: DUODENAL ULCER
     Route: 048
     Dates: start: 1999
  57. NEXIUM [Suspect]
     Active Substance: ESOMEPRAZOLE MAGNESIUM
     Indication: GASTRIC PH DECREASED
     Dosage: GENERIC; 40 MG DAILY
     Route: 065
  58. NEXIUM [Suspect]
     Active Substance: ESOMEPRAZOLE MAGNESIUM
     Indication: GASTRIC ULCER
     Dosage: GENERIC; 40 MG DAILY
     Route: 065
  59. NEXIUM [Suspect]
     Active Substance: ESOMEPRAZOLE MAGNESIUM
     Indication: HYPERCHLORHYDRIA
     Dosage: GENERIC; 40 MG DAILY
     Route: 065
  60. NEXIUM [Suspect]
     Active Substance: ESOMEPRAZOLE MAGNESIUM
     Indication: HIATUS HERNIA
     Dosage: GENERIC; 40 MG DAILY
     Route: 065
  61. NEXIUM [Suspect]
     Active Substance: ESOMEPRAZOLE MAGNESIUM
     Indication: VOMITING
     Dosage: GENERIC; 40 MG DAILY
     Route: 065
  62. NEXIUM [Suspect]
     Active Substance: ESOMEPRAZOLE MAGNESIUM
     Indication: HELICOBACTER INFECTION
     Route: 048
     Dates: start: 20041129
  63. NEXIUM [Suspect]
     Active Substance: ESOMEPRAZOLE MAGNESIUM
     Indication: HYPERCHLORHYDRIA
     Route: 048
     Dates: start: 200411, end: 2017
  64. NEXIUM [Suspect]
     Active Substance: ESOMEPRAZOLE MAGNESIUM
     Indication: DYSPHAGIA
     Route: 048
     Dates: start: 200604, end: 201702
  65. NEXIUM [Suspect]
     Active Substance: ESOMEPRAZOLE MAGNESIUM
     Indication: GASTROOESOPHAGEAL REFLUX DISEASE
     Route: 048
     Dates: start: 200604, end: 201702
  66. NEXIUM [Suspect]
     Active Substance: ESOMEPRAZOLE MAGNESIUM
     Indication: HYPERCHLORHYDRIA
     Route: 048
     Dates: start: 200604, end: 201702
  67. NEXIUM [Suspect]
     Active Substance: ESOMEPRAZOLE MAGNESIUM
     Indication: VOMITING
     Route: 048
     Dates: start: 200604, end: 201702
  68. NEXIUM [Suspect]
     Active Substance: ESOMEPRAZOLE MAGNESIUM
     Indication: ABDOMINAL DISCOMFORT
     Route: 048
  69. NEXIUM [Suspect]
     Active Substance: ESOMEPRAZOLE MAGNESIUM
     Indication: GASTRIC PH DECREASED
     Dosage: GENERIC NEXIUM?DAILY
     Route: 065
  70. NEXIUM [Suspect]
     Active Substance: ESOMEPRAZOLE MAGNESIUM
     Indication: VOMITING
     Dosage: GENERIC NEXIUM?DAILY
     Route: 065
  71. NEXIUM 24HR [Suspect]
     Active Substance: ESOMEPRAZOLE MAGNESIUM
     Indication: SCLERODERMA
     Dosage: DAILY
     Route: 048
  72. PRILOSEC [Suspect]
     Active Substance: OMEPRAZOLE MAGNESIUM
     Indication: HIATUS HERNIA
     Dosage: 40 MG DAILY, DISCONTINUED AFTER TAKING FOR 1 TO 2 MONTHS
     Route: 048
     Dates: start: 1997
  73. LISINOPRIL. [Suspect]
     Active Substance: LISINOPRIL
     Indication: RENAL DISORDER
     Route: 048
     Dates: start: 2012
  74. LISINOPRIL. [Suspect]
     Active Substance: LISINOPRIL
     Indication: RENAL DISORDER
     Route: 048
  75. PROTONIX [Suspect]
     Active Substance: PANTOPRAZOLE SODIUM
     Route: 065
  76. ASPIRIN. [Concomitant]
     Active Substance: ASPIRIN
     Indication: PULMONARY EMBOLISM
     Dates: start: 1990
  77. ASPIRIN. [Concomitant]
     Active Substance: ASPIRIN
     Indication: ANTICOAGULANT THERAPY
  78. VIT D [Concomitant]
     Active Substance: VITAMIN D NOS
  79. SODIUM BICARBONATE. [Concomitant]
     Active Substance: SODIUM BICARBONATE
     Indication: RENAL DISORDER
     Dates: start: 2016
  80. FISH OIL [Concomitant]
     Active Substance: FISH OIL
  81. PEPTO?BISMOL [Concomitant]
     Active Substance: BISMUTH SUBSALICYLATE
     Dosage: 1TABLESPOON
  82. NEXIUM [Suspect]
     Active Substance: ESOMEPRAZOLE MAGNESIUM
     Indication: GASTRIC PH DECREASED
     Route: 048
     Dates: start: 1999
  83. NEXIUM [Suspect]
     Active Substance: ESOMEPRAZOLE MAGNESIUM
     Indication: HYPERCHLORHYDRIA
     Route: 048
     Dates: start: 1999
  84. NEXIUM [Suspect]
     Active Substance: ESOMEPRAZOLE MAGNESIUM
     Indication: HIATUS HERNIA
     Route: 048
     Dates: start: 1999
  85. NEXIUM [Suspect]
     Active Substance: ESOMEPRAZOLE MAGNESIUM
     Indication: ABDOMINAL DISCOMFORT
     Route: 048
     Dates: start: 1999
  86. NEXIUM [Suspect]
     Active Substance: ESOMEPRAZOLE MAGNESIUM
     Indication: ABDOMINAL DISCOMFORT
     Dosage: GENERIC; 40 MG DAILY
     Route: 065
  87. NEXIUM [Suspect]
     Active Substance: ESOMEPRAZOLE MAGNESIUM
     Indication: GASTRIC ULCER
     Route: 048
     Dates: start: 20041129
  88. NEXIUM [Suspect]
     Active Substance: ESOMEPRAZOLE MAGNESIUM
     Indication: DUODENAL ULCER
     Route: 048
     Dates: start: 20041129
  89. NEXIUM [Suspect]
     Active Substance: ESOMEPRAZOLE MAGNESIUM
     Indication: HYPERCHLORHYDRIA
     Route: 048
     Dates: start: 20041129
  90. NEXIUM [Suspect]
     Active Substance: ESOMEPRAZOLE MAGNESIUM
     Indication: HIATUS HERNIA
     Route: 048
     Dates: start: 200411, end: 2017
  91. NEXIUM [Suspect]
     Active Substance: ESOMEPRAZOLE MAGNESIUM
     Indication: GASTRIC PH DECREASED
     Route: 048
     Dates: start: 200604, end: 201702
  92. NEXIUM [Suspect]
     Active Substance: ESOMEPRAZOLE MAGNESIUM
     Indication: GASTROOESOPHAGEAL REFLUX DISEASE
     Route: 048
     Dates: start: 200604, end: 201702
  93. NEXIUM [Suspect]
     Active Substance: ESOMEPRAZOLE MAGNESIUM
     Indication: ABDOMINAL DISCOMFORT
     Route: 048
     Dates: start: 200604, end: 201702
  94. NEXIUM [Suspect]
     Active Substance: ESOMEPRAZOLE MAGNESIUM
     Indication: LARYNGEAL STENOSIS
     Route: 048
     Dates: start: 200604, end: 201702
  95. NEXIUM [Suspect]
     Active Substance: ESOMEPRAZOLE MAGNESIUM
     Indication: VOMITING
     Route: 048
  96. NEXIUM [Suspect]
     Active Substance: ESOMEPRAZOLE MAGNESIUM
     Indication: SCLERODERMA
     Dosage: GENERIC NEXIUM?DAILY
     Route: 065
  97. NEXIUM [Suspect]
     Active Substance: ESOMEPRAZOLE MAGNESIUM
     Indication: HIATUS HERNIA
     Dosage: GENERIC NEXIUM?DAILY
     Route: 065
  98. NEXIUM [Suspect]
     Active Substance: ESOMEPRAZOLE MAGNESIUM
     Indication: DYSPHAGIA
     Route: 048
  99. NEXIUM [Suspect]
     Active Substance: ESOMEPRAZOLE MAGNESIUM
     Indication: GASTRIC ULCER
     Route: 048
  100. NEXIUM 24HR [Suspect]
     Active Substance: ESOMEPRAZOLE MAGNESIUM
     Indication: VOMITING
     Route: 048
  101. NEXIUM 24HR [Suspect]
     Active Substance: ESOMEPRAZOLE MAGNESIUM
     Indication: DYSPHAGIA
     Dosage: DAILY
     Route: 048
  102. NEXIUM 24HR [Suspect]
     Active Substance: ESOMEPRAZOLE MAGNESIUM
     Indication: GASTROOESOPHAGEAL REFLUX DISEASE
     Dosage: DAILY
     Route: 048
  103. PRILOSEC [Suspect]
     Active Substance: OMEPRAZOLE MAGNESIUM
     Indication: GASTROOESOPHAGEAL REFLUX DISEASE
     Dosage: GENERIC
     Route: 065
     Dates: start: 201101
  104. PRILOSEC OTC [Suspect]
     Active Substance: OMEPRAZOLE MAGNESIUM
     Indication: DYSPHAGIA
     Route: 048
  105. METOPROLOL SUCCINATE. [Suspect]
     Active Substance: METOPROLOL SUCCINATE
     Indication: HYPERTENSION
     Route: 048
  106. PHENOBARB [Suspect]
     Active Substance: PHENOBARBITAL SODIUM
     Indication: SEIZURE
     Dosage: 132.4MG UNKNOWN
     Route: 065
     Dates: start: 1960
  107. DILANTIN [Suspect]
     Active Substance: PHENYTOIN
     Route: 065
  108. FLUNISOLIDE. [Concomitant]
     Active Substance: FLUNISOLIDE
     Indication: MULTIPLE ALLERGIES
     Dosage: PRN
     Route: 045
  109. IMURAN [Concomitant]
     Active Substance: AZATHIOPRINE
     Indication: IMMUNE SYSTEM DISORDER
     Dates: start: 2012
  110. LIPITOR [Concomitant]
     Active Substance: ATORVASTATIN CALCIUM
     Indication: ANGIOPATHY
     Dates: start: 201504
  111. SIMVASTIN [Concomitant]
     Active Substance: SIMVASTATIN
     Indication: BLOOD CHOLESTEROL INCREASED
  112. KEPPRA [Concomitant]
     Active Substance: LEVETIRACETAM
     Indication: SEIZURE
     Route: 048
  113. FLUTICASONE. [Concomitant]
     Active Substance: FLUTICASONE
  114. CYCLOPHOSPHAMIDE. [Concomitant]
     Active Substance: CYCLOPHOSPHAMIDE
  115. AZELASTINE. [Concomitant]
     Active Substance: AZELASTINE HYDROCHLORIDE
  116. NEXIUM [Suspect]
     Active Substance: ESOMEPRAZOLE MAGNESIUM
     Indication: SCLERODERMA
     Route: 048
     Dates: start: 1999
  117. NEXIUM [Suspect]
     Active Substance: ESOMEPRAZOLE MAGNESIUM
     Indication: GASTRIC ULCER
     Route: 048
     Dates: start: 1999
  118. NEXIUM [Suspect]
     Active Substance: ESOMEPRAZOLE MAGNESIUM
     Indication: HELICOBACTER INFECTION
     Route: 048
     Dates: start: 1999
  119. NEXIUM [Suspect]
     Active Substance: ESOMEPRAZOLE MAGNESIUM
     Indication: GASTROOESOPHAGEAL REFLUX DISEASE
     Dosage: GENERIC; 40 MG DAILY
     Route: 065
  120. NEXIUM [Suspect]
     Active Substance: ESOMEPRAZOLE MAGNESIUM
     Indication: VOMITING
     Route: 048
     Dates: start: 20041129
  121. NEXIUM [Suspect]
     Active Substance: ESOMEPRAZOLE MAGNESIUM
     Indication: GASTROOESOPHAGEAL REFLUX DISEASE
     Route: 048
     Dates: start: 200411, end: 2017
  122. NEXIUM [Suspect]
     Active Substance: ESOMEPRAZOLE MAGNESIUM
     Indication: GASTRIC ULCER
     Route: 048
     Dates: start: 200411, end: 2017
  123. NEXIUM [Suspect]
     Active Substance: ESOMEPRAZOLE MAGNESIUM
     Indication: DUODENAL ULCER
     Route: 048
     Dates: start: 200411, end: 2017
  124. NEXIUM [Suspect]
     Active Substance: ESOMEPRAZOLE MAGNESIUM
     Indication: HIATUS HERNIA
     Route: 048
  125. NEXIUM [Suspect]
     Active Substance: ESOMEPRAZOLE MAGNESIUM
     Indication: HELICOBACTER INFECTION
     Route: 048
  126. NEXIUM [Suspect]
     Active Substance: ESOMEPRAZOLE MAGNESIUM
     Indication: GASTRIC ULCER
     Dosage: GENERIC NEXIUM?DAILY
     Route: 065
  127. NEXIUM [Suspect]
     Active Substance: ESOMEPRAZOLE MAGNESIUM
     Indication: THROAT IRRITATION
     Dosage: GENERIC NEXIUM?DAILY
     Route: 065
  128. NEXIUM [Suspect]
     Active Substance: ESOMEPRAZOLE MAGNESIUM
     Indication: LARYNGEAL STENOSIS
     Dosage: GENERIC NEXIUM?DAILY
     Route: 065
  129. NEXIUM [Suspect]
     Active Substance: ESOMEPRAZOLE MAGNESIUM
     Indication: ABDOMINAL DISCOMFORT
     Route: 048
  130. NEXIUM [Suspect]
     Active Substance: ESOMEPRAZOLE MAGNESIUM
     Indication: LARYNGEAL STENOSIS
     Route: 048
  131. NEXIUM 24HR [Suspect]
     Active Substance: ESOMEPRAZOLE MAGNESIUM
     Indication: VOMITING
     Route: 048
     Dates: start: 2014
  132. PRILOSEC [Suspect]
     Active Substance: OMEPRAZOLE MAGNESIUM
     Indication: HIATUS HERNIA
     Dosage: GENERIC
     Route: 065
     Dates: start: 201101
  133. PHENOBARB [Suspect]
     Active Substance: PHENOBARBITAL SODIUM
     Indication: AURA
     Route: 065
     Dates: start: 1960
  134. ASPIRIN. [Concomitant]
     Active Substance: ASPIRIN
     Indication: CARDIAC DISORDER
     Dates: start: 1990
  135. ASPIRIN. [Concomitant]
     Active Substance: ASPIRIN
     Indication: PULMONARY EMBOLISM
  136. CALCITROL [Concomitant]
     Indication: RENAL DISORDER
     Route: 048
     Dates: start: 2012
  137. NEXIUM [Suspect]
     Active Substance: ESOMEPRAZOLE MAGNESIUM
     Indication: GASTROOESOPHAGEAL REFLUX DISEASE
     Route: 048
     Dates: start: 1999
  138. NEXIUM [Suspect]
     Active Substance: ESOMEPRAZOLE MAGNESIUM
     Indication: GASTROOESOPHAGEAL REFLUX DISEASE
     Dosage: GENERIC; 40 MG DAILY
     Route: 065
  139. NEXIUM [Suspect]
     Active Substance: ESOMEPRAZOLE MAGNESIUM
     Indication: THROAT IRRITATION
     Dosage: GENERIC; 40 MG DAILY
     Route: 065
  140. NEXIUM [Suspect]
     Active Substance: ESOMEPRAZOLE MAGNESIUM
     Indication: GASTROOESOPHAGEAL REFLUX DISEASE
     Route: 048
     Dates: start: 20041129
  141. NEXIUM [Suspect]
     Active Substance: ESOMEPRAZOLE MAGNESIUM
     Indication: DYSPHAGIA
     Route: 048
     Dates: start: 20041129
  142. NEXIUM [Suspect]
     Active Substance: ESOMEPRAZOLE MAGNESIUM
     Indication: SCLERODERMA
     Route: 048
  143. NEXIUM [Suspect]
     Active Substance: ESOMEPRAZOLE MAGNESIUM
     Indication: GASTRIC ULCER
     Route: 048
  144. NEXIUM [Suspect]
     Active Substance: ESOMEPRAZOLE MAGNESIUM
     Indication: ABDOMINAL DISCOMFORT
     Dosage: GENERIC NEXIUM?DAILY
     Route: 065
  145. NEXIUM [Suspect]
     Active Substance: ESOMEPRAZOLE MAGNESIUM
     Indication: GASTROOESOPHAGEAL REFLUX DISEASE
     Route: 048
  146. NEXIUM 24HR [Suspect]
     Active Substance: ESOMEPRAZOLE MAGNESIUM
     Indication: SCLERODERMA
     Route: 048
  147. METOPROLOL SUCCINATE. [Suspect]
     Active Substance: METOPROLOL SUCCINATE
     Indication: HYPERTENSION
     Route: 048
     Dates: start: 201504
  148. BRILINTA [Suspect]
     Active Substance: TICAGRELOR
     Dosage: 60.0MG UNKNOWN
     Route: 048
     Dates: start: 20160506
  149. PHENOBARB [Suspect]
     Active Substance: PHENOBARBITAL SODIUM
     Indication: AURA
     Dosage: 132.4MG UNKNOWN
     Route: 065
     Dates: start: 1960
  150. ASPIRIN. [Concomitant]
     Active Substance: ASPIRIN
     Indication: CARDIAC DISORDER
  151. TAMSULOSIN [Concomitant]
     Active Substance: TAMSULOSIN
     Indication: PROSTATOMEGALY
     Dates: start: 2010
  152. AZITHROMYCIN ANHYDROUS. [Concomitant]
     Active Substance: AZITHROMYCIN ANHYDROUS
  153. EFFIENT [Concomitant]
     Active Substance: PRASUGREL HYDROCHLORIDE
  154. FUROSEMIDE. [Concomitant]
     Active Substance: FUROSEMIDE
  155. MYLANTA [Concomitant]
     Active Substance: ALUMINUM HYDROXIDE\DIMETHICONE\MAGNESIUM HYDROXIDE
     Dosage: 1TABLESPOON
  156. NEXIUM [Suspect]
     Active Substance: ESOMEPRAZOLE MAGNESIUM
     Indication: LARYNGEAL STENOSIS
     Dosage: GENERIC; 40 MG DAILY
     Route: 065
  157. NEXIUM [Suspect]
     Active Substance: ESOMEPRAZOLE MAGNESIUM
     Indication: ABDOMINAL DISCOMFORT
     Route: 048
     Dates: start: 20041129
  158. NEXIUM [Suspect]
     Active Substance: ESOMEPRAZOLE MAGNESIUM
     Indication: LARYNGEAL STENOSIS
     Route: 048
     Dates: start: 20041129
  159. NEXIUM [Suspect]
     Active Substance: ESOMEPRAZOLE MAGNESIUM
     Indication: DUODENAL ULCER
     Route: 048
     Dates: start: 200604, end: 201702
  160. NEXIUM [Suspect]
     Active Substance: ESOMEPRAZOLE MAGNESIUM
     Indication: DUODENAL ULCER
     Route: 048
  161. NEXIUM [Suspect]
     Active Substance: ESOMEPRAZOLE MAGNESIUM
     Indication: LARYNGEAL STENOSIS
     Route: 048
  162. NEXIUM [Suspect]
     Active Substance: ESOMEPRAZOLE MAGNESIUM
     Indication: HYPERCHLORHYDRIA
     Dosage: GENERIC NEXIUM?DAILY
     Route: 065
  163. NEXIUM [Suspect]
     Active Substance: ESOMEPRAZOLE MAGNESIUM
     Indication: HELICOBACTER INFECTION
     Dosage: GENERIC NEXIUM?DAILY
     Route: 065
  164. NEXIUM [Suspect]
     Active Substance: ESOMEPRAZOLE MAGNESIUM
     Indication: DUODENAL ULCER
     Route: 048
  165. NEXIUM [Suspect]
     Active Substance: ESOMEPRAZOLE MAGNESIUM
     Indication: VOMITING
     Route: 048
  166. NEXIUM 24HR [Suspect]
     Active Substance: ESOMEPRAZOLE MAGNESIUM
     Indication: DYSPHAGIA
     Route: 048
     Dates: start: 2014
  167. NEXIUM 24HR [Suspect]
     Active Substance: ESOMEPRAZOLE MAGNESIUM
     Indication: GASTROOESOPHAGEAL REFLUX DISEASE
     Route: 048
     Dates: start: 2014
  168. NEXIUM 24HR [Suspect]
     Active Substance: ESOMEPRAZOLE MAGNESIUM
     Indication: VOMITING
     Dosage: DAILY
     Route: 048
  169. PREVACID [Suspect]
     Active Substance: LANSOPRAZOLE
     Route: 065
  170. PHENOBARB [Suspect]
     Active Substance: PHENOBARBITAL SODIUM
     Indication: SEIZURE
     Dosage: 110.0MG UNKNOWN
     Route: 065
     Dates: start: 1960
  171. ASPIRIN. [Concomitant]
     Active Substance: ASPIRIN
     Indication: ANTICOAGULANT THERAPY
     Dates: start: 1990
  172. SODIUM BICARBONATE. [Concomitant]
     Active Substance: SODIUM BICARBONATE
     Indication: RENAL DISORDER
     Dates: start: 2012
  173. LORAZEPAM. [Concomitant]
     Active Substance: LORAZEPAM
     Indication: ANXIETY
     Route: 048
     Dates: start: 201504
  174. LORAZEPAM. [Concomitant]
     Active Substance: LORAZEPAM
     Indication: ANXIETY
     Route: 048
     Dates: start: 201604
  175. FLINSTOPNE MULTIVITAMINS [Concomitant]
     Dosage: 1 DAILY
  176. NEXIUM [Suspect]
     Active Substance: ESOMEPRAZOLE MAGNESIUM
     Indication: DYSPHAGIA
     Dosage: GENERIC; 40 MG DAILY
     Route: 065
  177. NEXIUM [Suspect]
     Active Substance: ESOMEPRAZOLE MAGNESIUM
     Indication: GASTROOESOPHAGEAL REFLUX DISEASE
     Route: 048
     Dates: start: 20041129
  178. NEXIUM [Suspect]
     Active Substance: ESOMEPRAZOLE MAGNESIUM
     Indication: GASTRIC PH DECREASED
     Route: 048
     Dates: start: 200411, end: 2017
  179. NEXIUM [Suspect]
     Active Substance: ESOMEPRAZOLE MAGNESIUM
     Indication: GASTROOESOPHAGEAL REFLUX DISEASE
     Route: 048
     Dates: start: 200411, end: 2017
  180. NEXIUM [Suspect]
     Active Substance: ESOMEPRAZOLE MAGNESIUM
     Indication: DYSPHAGIA
     Route: 048
     Dates: start: 200411, end: 2017
  181. NEXIUM [Suspect]
     Active Substance: ESOMEPRAZOLE MAGNESIUM
     Indication: VOMITING
     Route: 048
     Dates: start: 200411, end: 2017
  182. NEXIUM [Suspect]
     Active Substance: ESOMEPRAZOLE MAGNESIUM
     Indication: ABDOMINAL DISCOMFORT
     Route: 048
     Dates: start: 200411, end: 2017
  183. NEXIUM [Suspect]
     Active Substance: ESOMEPRAZOLE MAGNESIUM
     Indication: SCLERODERMA
     Route: 048
     Dates: start: 200604, end: 201702
  184. NEXIUM [Suspect]
     Active Substance: ESOMEPRAZOLE MAGNESIUM
     Indication: GASTRIC PH DECREASED
     Route: 048
  185. NEXIUM [Suspect]
     Active Substance: ESOMEPRAZOLE MAGNESIUM
     Indication: DYSPHAGIA
     Route: 048
  186. NEXIUM [Suspect]
     Active Substance: ESOMEPRAZOLE MAGNESIUM
     Indication: THROAT IRRITATION
     Route: 048
  187. NEXIUM [Suspect]
     Active Substance: ESOMEPRAZOLE MAGNESIUM
     Indication: GASTROOESOPHAGEAL REFLUX DISEASE
     Dosage: GENERIC NEXIUM?DAILY
     Route: 065
  188. NEXIUM [Suspect]
     Active Substance: ESOMEPRAZOLE MAGNESIUM
     Indication: GASTROOESOPHAGEAL REFLUX DISEASE
     Dosage: GENERIC NEXIUM?DAILY
     Route: 065
  189. NEXIUM [Suspect]
     Active Substance: ESOMEPRAZOLE MAGNESIUM
     Indication: DUODENAL ULCER
     Dosage: GENERIC NEXIUM?DAILY
     Route: 065
  190. NEXIUM [Suspect]
     Active Substance: ESOMEPRAZOLE MAGNESIUM
     Indication: GASTROOESOPHAGEAL REFLUX DISEASE
     Route: 048
  191. NEXIUM [Suspect]
     Active Substance: ESOMEPRAZOLE MAGNESIUM
     Indication: HELICOBACTER INFECTION
     Route: 048
  192. NEXIUM 24HR [Suspect]
     Active Substance: ESOMEPRAZOLE MAGNESIUM
     Indication: DYSPHAGIA
     Route: 048
  193. PRILOSEC [Suspect]
     Active Substance: OMEPRAZOLE MAGNESIUM
     Indication: DYSPHAGIA
     Route: 048
  194. PRILOSEC [Suspect]
     Active Substance: OMEPRAZOLE MAGNESIUM
     Indication: HIATUS HERNIA
     Route: 048
  195. PRILOSEC [Suspect]
     Active Substance: OMEPRAZOLE MAGNESIUM
     Indication: DYSPHAGIA
     Dosage: GENERIC
     Route: 065
     Dates: start: 201101
  196. LISINOPRIL. [Suspect]
     Active Substance: LISINOPRIL
     Indication: BLOOD PRESSURE MEASUREMENT
     Route: 048
     Dates: start: 2016
  197. PHENOBARB [Suspect]
     Active Substance: PHENOBARBITAL SODIUM
     Indication: AURA
     Dosage: 32.4MG UNKNOWN
     Route: 065
     Dates: start: 1960
  198. ASPIRIN. [Concomitant]
     Active Substance: ASPIRIN
     Indication: PULMONARY EMBOLISM
     Dates: start: 2016
  199. ASPIRIN. [Concomitant]
     Active Substance: ASPIRIN
     Indication: CARDIAC DISORDER
     Dates: start: 2016
  200. PREDNISONE. [Concomitant]
     Active Substance: PREDNISONE
     Indication: URINARY TRACT INFLAMMATION
     Dates: start: 2012
  201. KEPPRA [Concomitant]
     Active Substance: LEVETIRACETAM
     Indication: SEIZURE
     Dates: start: 2016
  202. CLONIDINE. [Concomitant]
     Active Substance: CLONIDINE

REACTIONS (58)
  - Nephrogenic anaemia [Unknown]
  - Seizure [Recovered/Resolved]
  - Raynaud^s phenomenon [Unknown]
  - Hiatus hernia [Unknown]
  - Blood cholesterol increased [Unknown]
  - Flatulence [Unknown]
  - Ill-defined disorder [Unknown]
  - Product use in unapproved indication [Unknown]
  - Dyspepsia [Unknown]
  - Nausea [Unknown]
  - Feeling abnormal [Unknown]
  - Oropharyngeal discomfort [Unknown]
  - Renal failure [Not Recovered/Not Resolved]
  - Dysphagia [Unknown]
  - Pain [Unknown]
  - Hypertension [Unknown]
  - Off label use [Unknown]
  - Product dose omission issue [Unknown]
  - Chest pain [Unknown]
  - Blood calcium decreased [Recovered/Resolved]
  - Drug ineffective [Unknown]
  - Neoplasm malignant [Unknown]
  - Weight decreased [Unknown]
  - Intentional product use issue [Unknown]
  - Pleurisy [Unknown]
  - Chronic kidney disease-mineral and bone disorder [Unknown]
  - Coronary artery occlusion [Unknown]
  - Tubulointerstitial nephritis [Unknown]
  - Oesophageal obstruction [Unknown]
  - Retching [Unknown]
  - Diarrhoea [Unknown]
  - Protein total decreased [Recovered/Resolved]
  - Psychomotor hyperactivity [Unknown]
  - Lupus nephritis [Unknown]
  - Haemoglobin decreased [Recovered/Resolved]
  - Chest discomfort [Unknown]
  - Dyspnoea [Not Recovered/Not Resolved]
  - Blood phosphorus increased [Recovered/Resolved]
  - Dehydration [Recovered/Resolved]
  - Product use issue [Unknown]
  - Myocardial infarction [Unknown]
  - Coronary artery disease [Unknown]
  - Choking [Unknown]
  - Hand deformity [Unknown]
  - Chronic kidney disease [Unknown]
  - End stage renal disease [Not Recovered/Not Resolved]
  - Renal impairment [Unknown]
  - Vomiting [Unknown]
  - Headache [Unknown]
  - Disability [Unknown]
  - Acute kidney injury [Unknown]
  - Vascular rupture [Unknown]
  - Immune system disorder [Unknown]
  - Fat tissue increased [Unknown]
  - Prostatomegaly [Unknown]
  - Memory impairment [Unknown]
  - Hepatic enzyme increased [Unknown]
  - Cardiac disorder [Unknown]

NARRATIVE: CASE EVENT DATE: 20130226
